FAERS Safety Report 25376776 (Version 1)
Quarter: 2025Q2

REPORT INFORMATION
  Report Type: Spontaneous
  Country: US (occurrence: US)
  Receive Date: 20250530
  Receipt Date: 20250530
  Transmission Date: 20250717
  Serious: No
  Sender: AUROBINDO
  Company Number: US-AUROBINDO-AUR-APL-2025-017967

PATIENT
  Age: 38 Year
  Sex: Female
  Weight: 73.4 kg

DRUGS (3)
  1. ONDANSETRON [Suspect]
     Active Substance: ONDANSETRON
     Indication: Nausea
     Dosage: UNK, ONCE A DAY [1-3 A DAY]
     Route: 048
     Dates: start: 20241114
  2. ONDANSETRON [Suspect]
     Active Substance: ONDANSETRON
     Route: 048
  3. ZEPBOUND [Concomitant]
     Active Substance: TIRZEPATIDE
     Indication: Obesity
     Route: 048
     Dates: start: 202411

REACTIONS (3)
  - Product taste abnormal [Unknown]
  - Product odour abnormal [Unknown]
  - Drug ineffective [Unknown]

NARRATIVE: CASE EVENT DATE: 20250311
